FAERS Safety Report 22786967 (Version 4)
Quarter: 2024Q4

REPORT INFORMATION
  Report Type: Report from Study
  Country: MX (occurrence: MX)
  Receive Date: 20230804
  Receipt Date: 20241210
  Transmission Date: 20250115
  Serious: Yes (Life-Threatening, Hospitalization)
  Sender: NOVARTIS
  Company Number: MX-002147023-NVSC2023MX158006

PATIENT
  Age: 66 Year
  Sex: Female
  Weight: 43 kg

DRUGS (8)
  1. EXFORGE HCT [Suspect]
     Active Substance: AMLODIPINE BESYLATE\HYDROCHLOROTHIAZIDE\VALSARTAN
     Indication: Hypertension
     Dosage: 1 DOSAGE FORM, QD
     Route: 048
     Dates: start: 2020, end: 202012
  2. EXFORGE HCT [Suspect]
     Active Substance: AMLODIPINE BESYLATE\HYDROCHLOROTHIAZIDE\VALSARTAN
     Dosage: 1 DOSAGE FORM, QD
     Route: 048
     Dates: start: 202203, end: 202409
  3. EXFORGE HCT [Suspect]
     Active Substance: AMLODIPINE BESYLATE\HYDROCHLOROTHIAZIDE\VALSARTAN
     Dosage: 1 DOSAGE FORM, QD (SINCE 2021 OR 2022,)
     Route: 048
     Dates: end: 202312
  4. EXFORGE HCT [Suspect]
     Active Substance: AMLODIPINE BESYLATE\HYDROCHLOROTHIAZIDE\VALSARTAN
     Dosage: 1 DOSAGE FORM, QD (1 MONTH AGO)
     Route: 048
  5. EXFORGE HCT [Suspect]
     Active Substance: AMLODIPINE BESYLATE\HYDROCHLOROTHIAZIDE\VALSARTAN
     Dosage: 0.5 DOSAGE FORM, QD
     Route: 048
     Dates: start: 202409
  6. ILTUX [Concomitant]
     Indication: Hypertension
     Dosage: 1 DOSAGE FORM QD (40MG TABLET)
     Route: 048
     Dates: start: 2020, end: 2021
  7. MICARDIS [Concomitant]
     Active Substance: TELMISARTAN
     Indication: Hypertension
     Dosage: UNK
     Route: 065
  8. PRAZOSIN [Concomitant]
     Active Substance: PRAZOSIN
     Indication: Hypertension
     Dosage: 10 MG, TID (TABLET OF 10MG)
     Route: 048
     Dates: start: 2020, end: 2021

REACTIONS (17)
  - Hypertensive crisis [Unknown]
  - Hernia [Recovered/Resolved]
  - Intestinal obstruction [Recovered/Resolved]
  - Blood sodium decreased [Recovered/Resolved]
  - Solar urticaria [Recovered/Resolved]
  - Blood sodium decreased [Not Recovered/Not Resolved]
  - Peripheral swelling [Recovering/Resolving]
  - Bone demineralisation [Not Recovered/Not Resolved]
  - Weight decreased [Recovered/Resolved]
  - Off label use [Unknown]
  - Hypersensitivity [Not Recovered/Not Resolved]
  - Rash [Unknown]
  - Electrolyte depletion [Not Recovered/Not Resolved]
  - Blood chloride decreased [Not Recovered/Not Resolved]
  - Blood pressure increased [Recovered/Resolved]
  - Stress [Unknown]
  - Body height decreased [Unknown]

NARRATIVE: CASE EVENT DATE: 20201201
